FAERS Safety Report 26034297 (Version 1)
Quarter: 2025Q4

REPORT INFORMATION
  Report Type: Spontaneous
  Country: US (occurrence: None)
  Receive Date: 20251111
  Receipt Date: 20251111
  Transmission Date: 20260117
  Serious: Yes (Life-Threatening)
  Sender: FDA-CTU
  Company Number: None

PATIENT
  Age: 70 Year
  Sex: Female

DRUGS (1)
  1. KISQALI [Suspect]
     Active Substance: RIBOCICLIB SUCCINATE
     Dosage: 400MG ONCE DAILY FOR 21 DAYS ON AND 7 DAYS OFF?

REACTIONS (5)
  - Nasopharyngitis [None]
  - Back pain [None]
  - Gait disturbance [None]
  - Haemoglobin decreased [None]
  - Hypervolaemia [None]
